FAERS Safety Report 5467123-X (Version None)
Quarter: 2007Q3

REPORT INFORMATION
  Report Type: 
  Country: None (occurrence: None)
  Receive Date: 20070921
  Receipt Date: 20070921
  Transmission Date: 20080115
  Serious: Yes (Hospitalization, Other)
  Sender: FDA-Public Use
  Company Number: None

PATIENT
  Age: 30 Year
  Sex: Female
  Weight: 82.5547 kg

DRUGS (1)
  1. LISINOPRIL [Suspect]
     Dosage: 20 MG DAILY PO
     Route: 048

REACTIONS (9)
  - ABASIA [None]
  - ANXIETY [None]
  - CHILLS [None]
  - DYSPNOEA [None]
  - FEELING ABNORMAL [None]
  - MUSCLE TIGHTNESS [None]
  - SENSATION OF HEAVINESS [None]
  - URINARY RETENTION [None]
  - URINARY TRACT INFECTION [None]
